FAERS Safety Report 6313220-6 (Version None)
Quarter: 2009Q3

REPORT INFORMATION
  Report Type: 
  Country: None (occurrence: None)
  Receive Date: 20090818
  Receipt Date: 20090812
  Transmission Date: 20100115
  Serious: Yes (Other)
  Sender: FDA-Public Use
  Company Number: US-AVENTIS-200916314US

PATIENT
  Sex: Male
  Weight: 127 kg

DRUGS (11)
  1. LANTUS [Suspect]
     Route: 058
     Dates: start: 20040701
  2. OPTICLIK (INSULIN INJECTION PEN) [Suspect]
  3. METOPROLOL TARTRATE [Concomitant]
     Dosage: DOSE: UNK
  4. LASIX [Concomitant]
     Dosage: DOSE: UNK
  5. CARDIZEM [Concomitant]
     Dosage: DOSE: UNK
  6. ACTOS [Concomitant]
     Dosage: DOSE: UNK
  7. GLIMEPIRIDE [Concomitant]
     Dosage: DOSE: UNK
  8. CLONIDINE [Concomitant]
     Dosage: DOSE: UNK
  9. LOVAZA [Concomitant]
     Dosage: DOSE: UNK
  10. AVAPRO [Concomitant]
     Dosage: DOSE: UNK
  11. PRAVASTATIN [Concomitant]
     Dosage: DOSE: UNK

REACTIONS (1)
  - RENAL IMPAIRMENT [None]
